FAERS Safety Report 6083157-9 (Version None)
Quarter: 2009Q1

REPORT INFORMATION
  Report Type: 
  Country: None (occurrence: None)
  Receive Date: 20090213
  Receipt Date: 20090213
  Transmission Date: 20090719
  Serious: Yes (Death)
  Sender: FDA-Public Use
  Company Number: None

PATIENT
  Sex: Male
  Weight: 87.5442 kg

DRUGS (3)
  1. AVASTIN [Suspect]
     Indication: NON-SMALL CELL LUNG CANCER STAGE IV
     Dosage: 875MG X 1 DOSE
     Dates: start: 20090107
  2. GEMZAR [Concomitant]
  3. TAXOL [Concomitant]

REACTIONS (2)
  - LARGE INTESTINE PERFORATION [None]
  - SEPSIS [None]
